FAERS Safety Report 13839540 (Version 1)
Quarter: 2017Q3

REPORT INFORMATION
  Report Type: Spontaneous
  Country: US (occurrence: US)
  Receive Date: 20170805
  Receipt Date: 20170805
  Transmission Date: 20171127
  Serious: Yes (Hospitalization)
  Sender: FDA-Public Use
  Company Number: None

PATIENT
  Age: 63 Year
  Sex: Female

DRUGS (15)
  1. LANSOPRAZOLE. [Concomitant]
     Active Substance: LANSOPRAZOLE
  2. INSULIN ASPART [Concomitant]
     Active Substance: INSULIN ASPART
  3. ACETAMINOPHEN. [Concomitant]
     Active Substance: ACETAMINOPHEN
  4. SULFAMETHOXAZOLE/TRIMETHOPRIM [Concomitant]
     Active Substance: SULFAMETHOXAZOLE\TRIMETHOPRIM
  5. TACROLIMUS. [Concomitant]
     Active Substance: TACROLIMUS
  6. LEVOTHYROXINE. [Concomitant]
     Active Substance: LEVOTHYROXINE
  7. NYSTATIN. [Concomitant]
     Active Substance: NYSTATIN
  8. CEFEPIME [Concomitant]
     Active Substance: CEFEPIME HYDROCHLORIDE
  9. MYCOPHENOLATE [Concomitant]
     Active Substance: MYCOPHENOLIC ACID
  10. VORICONAZOLE. [Suspect]
     Active Substance: VORICONAZOLE
     Indication: INFECTION
     Route: 042
     Dates: start: 20170217, end: 20170220
  11. ESCITALOPRAM [Concomitant]
     Active Substance: ESCITALOPRAM OXALATE
  12. GANCICLOVIR. [Concomitant]
     Active Substance: GANCICLOVIR
  13. METHYLPREDNISOLONE. [Concomitant]
     Active Substance: METHYLPREDNISOLONE
  14. VANCOMYCIN [Concomitant]
     Active Substance: VANCOMYCIN
  15. ZINC OXIDE/COD LIVER OIL [Concomitant]

REACTIONS (2)
  - Feeling abnormal [None]
  - Hallucination, visual [None]

NARRATIVE: CASE EVENT DATE: 20170219
